FAERS Safety Report 14495962 (Version 3)
Quarter: 2018Q1

REPORT INFORMATION
  Report Type: Report from Study
  Country: US (occurrence: US)
  Receive Date: 20180207
  Receipt Date: 20180330
  Transmission Date: 20180509
  Serious: Yes (Other)
  Sender: FDA-Public Use
  Company Number: PHEH2018US003425

PATIENT
  Age: 84 Year
  Sex: Female

DRUGS (1)
  1. TRAVATAN Z [Suspect]
     Active Substance: TRAVOPROST
     Indication: GLAUCOMA
     Dosage: UNK, QHS, BOTH EYES
     Route: 047
     Dates: start: 20130205

REACTIONS (7)
  - Posterior capsule opacification [Recovered/Resolved]
  - Cataract operation complication [Recovered/Resolved]
  - Diplopia [Unknown]
  - Visual impairment [Unknown]
  - Dysstasia [Unknown]
  - Blindness [Unknown]
  - Retinal scar [Unknown]

NARRATIVE: CASE EVENT DATE: 20170606
